FAERS Safety Report 7784990-5 (Version None)
Quarter: 2011Q3

REPORT INFORMATION
  Report Type: 
  Country: None (occurrence: None)
  Receive Date: 20110928
  Receipt Date: 20110923
  Transmission Date: 20111222
  Serious: Yes (Death)
  Sender: FDA-Public Use
  Company Number: CHNY2011GB00463

PATIENT
  Age: 27 Year
  Sex: Female

DRUGS (4)
  1. IBUPROFEN UNKNOWN MANUFACTURER [Suspect]
     Dosage: 7000 MG, ONCE/SINGLE
  2. DICLOFENAC [Suspect]
     Dosage: 2800 MG, ONCE/SINGLE
  3. FERROUS SULFATE TAB [Suspect]
     Dosage: 86 DF, ONCE/SINGLE (EQUIVALENT TO 103 MG/KG OF ELEMENTAN IRON)
  4. CO-DYDRAMOL [Suspect]
     Dosage: 16 DF, ONCE/SINGLE (8 G OF PARACETAMOL, 148 MG/KG)

REACTIONS (20)
  - METABOLIC ACIDOSIS [None]
  - BLOOD BILIRUBIN INCREASED [None]
  - BLOOD CALCIUM DECREASED [None]
  - BLOOD CREATININE INCREASED [None]
  - BLOOD PHOSPHORUS DECREASED [None]
  - SINUS TACHYCARDIA [None]
  - MULTI-ORGAN FAILURE [None]
  - MULTIPLE DRUG OVERDOSE [None]
  - NAUSEA [None]
  - BLOOD IRON INCREASED [None]
  - ACUTE HEPATIC FAILURE [None]
  - VOMITING [None]
  - COAGULOPATHY [None]
  - HYPOTENSION [None]
  - PLATELET COUNT DECREASED [None]
  - HAEMATEMESIS [None]
  - ELECTROLYTE IMBALANCE [None]
  - ALANINE AMINOTRANSFERASE INCREASED [None]
  - ANAEMIA [None]
  - INTERNATIONAL NORMALISED RATIO INCREASED [None]
